FAERS Safety Report 12388382 (Version 17)
Quarter: 2019Q2

REPORT INFORMATION
  Report Type: Report from Study
  Country: CA (occurrence: CA)
  Receive Date: 20160520
  Receipt Date: 20190620
  Transmission Date: 20190711
  Serious: Yes (Hospitalization, Other)
  Sender: FDA-Public Use
  Company Number: PHHY2012CA127441

PATIENT
  Age: 66 Year
  Sex: Female

DRUGS (22)
  1. GLEEVEC [Suspect]
     Active Substance: IMATINIB MESYLATE
     Dosage: 400 MG, QHS
     Route: 048
  2. GLEEVEC [Suspect]
     Active Substance: IMATINIB MESYLATE
     Indication: CHRONIC MYELOID LEUKAEMIA
     Dosage: 300 MG, QD
     Route: 048
     Dates: start: 20100407
  3. GLEEVEC [Suspect]
     Active Substance: IMATINIB MESYLATE
     Dosage: 200 MG, QD
     Route: 048
     Dates: start: 20181005
  4. ESTROGEN [Concomitant]
     Active Substance: ESTROGENS
     Indication: PRODUCT USED FOR UNKNOWN INDICATION
     Dosage: UNK
     Route: 065
  5. IMOVANE [Concomitant]
     Active Substance: ZOPICLONE
     Indication: PRODUCT USED FOR UNKNOWN INDICATION
     Dosage: UNK
     Route: 065
  6. PROMETRIUM [Concomitant]
     Active Substance: PROGESTERONE
     Indication: PRODUCT USED FOR UNKNOWN INDICATION
     Dosage: UNK
     Route: 065
  7. IRON [Concomitant]
     Active Substance: IRON
     Indication: PRODUCT USED FOR UNKNOWN INDICATION
     Route: 065
  8. IRON [Concomitant]
     Active Substance: IRON
     Dosage: 1 PILL 2 DAYS A WEEK
     Route: 065
  9. VITAMIN B12 [Concomitant]
     Active Substance: CYANOCOBALAMIN
     Indication: VITAMIN B12 DEFICIENCY
     Dosage: 1000 UG, QD
     Route: 060
     Dates: start: 201211
  10. GLEEVEC [Suspect]
     Active Substance: IMATINIB MESYLATE
     Dosage: UNK
     Route: 048
     Dates: start: 20170407
  11. GLEEVEC [Suspect]
     Active Substance: IMATINIB MESYLATE
     Dosage: 300 MG, QD
     Route: 048
     Dates: end: 20171025
  12. AVAPRO [Concomitant]
     Active Substance: IRBESARTAN
     Indication: PRODUCT USED FOR UNKNOWN INDICATION
     Dosage: 15 MG, UNK
     Route: 065
  13. XARELTO [Concomitant]
     Active Substance: RIVAROXABAN
     Dosage: UNK
     Route: 065
     Dates: start: 20170202
  14. IRON [Concomitant]
     Active Substance: IRON
     Dosage: 1 PILL 2 DAYS A WEEK TO 1 PILL 3 DAYS AWEEK
     Route: 065
  15. GLEEVEC [Suspect]
     Active Substance: IMATINIB MESYLATE
     Dosage: 300 MG, QD
     Route: 048
     Dates: end: 20170119
  16. FOLATE [Concomitant]
     Active Substance: FOLATE SODIUM
     Indication: FOLATE DEFICIENCY
     Dosage: 400 UG, QD
     Route: 065
     Dates: start: 201211
  17. XARELTO [Concomitant]
     Active Substance: RIVAROXABAN
     Indication: PRODUCT USED FOR UNKNOWN INDICATION
     Dosage: UNK
     Route: 065
  18. GLEEVEC [Suspect]
     Active Substance: IMATINIB MESYLATE
     Dosage: 300 MG, QD
     Route: 048
  19. PROBIOTIC [Concomitant]
     Active Substance: PROBIOTICS NOS
     Indication: PRODUCT USED FOR UNKNOWN INDICATION
     Route: 065
  20. IMATINIB TEVA [Suspect]
     Active Substance: IMATINIB
     Indication: CHRONIC MYELOID LEUKAEMIA
     Dosage: UNK
     Route: 065
  21. COUMADIN [Suspect]
     Active Substance: WARFARIN SODIUM
     Indication: PRODUCT USED FOR UNKNOWN INDICATION
     Dosage: UNK
     Route: 065
  22. PROGESTERONE. [Concomitant]
     Active Substance: PROGESTERONE
     Indication: PRODUCT USED FOR UNKNOWN INDICATION
     Dosage: 100 MG, UNK
     Route: 065

REACTIONS (59)
  - Haemoglobin decreased [Recovering/Resolving]
  - Depressed mood [Unknown]
  - Loss of consciousness [Unknown]
  - Coagulopathy [Unknown]
  - Rash [Unknown]
  - Vomiting [Unknown]
  - Squamous cell carcinoma [Unknown]
  - Dyspnoea [Recovering/Resolving]
  - Diarrhoea [Recovering/Resolving]
  - Immunodeficiency [Unknown]
  - Asthenia [Unknown]
  - Large intestine polyp [Unknown]
  - Fatigue [Recovered/Resolved]
  - Pyrexia [Unknown]
  - Abdominal distension [Unknown]
  - Fatigue [Unknown]
  - Mucormycosis [Unknown]
  - Blood sodium abnormal [Unknown]
  - Bone density decreased [Unknown]
  - Memory impairment [Recovering/Resolving]
  - Platelet count decreased [Unknown]
  - Chills [Unknown]
  - Hypotension [Unknown]
  - Malaise [Unknown]
  - Flatulence [Unknown]
  - Lung infection [Recovering/Resolving]
  - Second primary malignancy [Unknown]
  - Cardiac flutter [Unknown]
  - Dizziness [Unknown]
  - Arrhythmia [Unknown]
  - Eye haemorrhage [Unknown]
  - Haemorrhage [Unknown]
  - Limb injury [Unknown]
  - Atrophic glossitis [Not Recovered/Not Resolved]
  - Laziness [Unknown]
  - Musculoskeletal stiffness [Unknown]
  - Cough [Unknown]
  - Arthralgia [Unknown]
  - Mycobacterium avium complex infection [Not Recovered/Not Resolved]
  - Frequent bowel movements [Recovering/Resolving]
  - Dehydration [Unknown]
  - Burning sensation [Unknown]
  - Blood pressure increased [Recovering/Resolving]
  - Insomnia [Unknown]
  - Pruritus [Unknown]
  - Constipation [Unknown]
  - Atrial fibrillation [Unknown]
  - Lip injury [Unknown]
  - Blood urine present [Unknown]
  - Iron deficiency [Unknown]
  - Blood potassium increased [Unknown]
  - Colitis [Unknown]
  - Haemarthrosis [Unknown]
  - Myocardial infarction [Unknown]
  - Large intestine fibroma [Unknown]
  - Gastrointestinal bacterial overgrowth [Unknown]
  - Nasopharyngitis [Unknown]
  - Contusion [Recovering/Resolving]
  - Oedema peripheral [Recovering/Resolving]

NARRATIVE: CASE EVENT DATE: 201404
